FAERS Safety Report 19256880 (Version 1)
Quarter: 2021Q2

REPORT INFORMATION
  Report Type: Spontaneous
  Country: US (occurrence: US)
  Receive Date: 20210514
  Receipt Date: 20210514
  Transmission Date: 20210717
  Serious: No
  Sender: FDA-Public Use
  Company Number: US-009507513-2105USA002989

PATIENT
  Sex: Female
  Weight: 96.6 kg

DRUGS (2)
  1. KEYTRUDA [Suspect]
     Active Substance: PEMBROLIZUMAB
     Dosage: UNK
  2. LENVATINIB MESYLATE [Suspect]
     Active Substance: LENVATINIB MESYLATE
     Indication: UTERINE CANCER
     Dosage: 12 MILLIGRAM (3X 4 MG) DALIY; ALSO REPORTED AS 10 MG/DAY
     Route: 048
     Dates: start: 20210423

REACTIONS (3)
  - Diarrhoea [Unknown]
  - Blood bilirubin increased [Unknown]
  - Fatigue [Unknown]
